FAERS Safety Report 6643312-3 (Version None)
Quarter: 2010Q1

REPORT INFORMATION
  Report Type: 
  Country: None (occurrence: None)
  Receive Date: 20100319
  Receipt Date: 20100309
  Transmission Date: 20100710
  Serious: Yes (Other)
  Sender: FDA-Public Use
  Company Number: JP-ROCHE-683696

PATIENT
  Sex: Female
  Weight: 47 kg

DRUGS (34)
  1. ACTEMRA [Suspect]
     Indication: RHEUMATOID ARTHRITIS
     Route: 041
     Dates: start: 20080611, end: 20080611
  2. ACTEMRA [Suspect]
     Route: 041
     Dates: start: 20080710, end: 20080710
  3. ACTEMRA [Suspect]
     Route: 041
     Dates: start: 20080806, end: 20080806
  4. ACTEMRA [Suspect]
     Route: 041
     Dates: start: 20080902, end: 20080902
  5. ACTEMRA [Suspect]
     Route: 041
     Dates: start: 20081002, end: 20081002
  6. ACTEMRA [Suspect]
     Route: 041
     Dates: start: 20081030, end: 20081030
  7. ACTEMRA [Suspect]
     Route: 041
     Dates: start: 20081126, end: 20081126
  8. ACTEMRA [Suspect]
     Route: 041
     Dates: start: 20081224, end: 20081224
  9. ACTEMRA [Suspect]
     Route: 041
     Dates: start: 20100121, end: 20100121
  10. ACTEMRA [Suspect]
     Route: 041
     Dates: start: 20100219, end: 20100219
  11. ACTEMRA [Suspect]
     Route: 041
     Dates: start: 20090318, end: 20090318
  12. ACTEMRA [Suspect]
     Route: 041
     Dates: start: 20090416, end: 20090416
  13. ACTEMRA [Suspect]
     Route: 041
     Dates: start: 20090515, end: 20090515
  14. ACTEMRA [Suspect]
     Route: 041
     Dates: start: 20090612, end: 20090612
  15. ACTEMRA [Suspect]
     Route: 041
     Dates: start: 20090710, end: 20090710
  16. ACTEMRA [Suspect]
     Route: 041
     Dates: start: 20090807, end: 20090807
  17. ACTEMRA [Suspect]
     Route: 041
     Dates: start: 20090904, end: 20090904
  18. ACTEMRA [Suspect]
     Route: 041
     Dates: start: 20091002, end: 20091002
  19. ACTEMRA [Suspect]
     Route: 041
     Dates: start: 20091030, end: 20091030
  20. ACTEMRA [Suspect]
     Route: 041
     Dates: start: 20091127, end: 20091127
  21. ACTEMRA [Suspect]
     Route: 041
     Dates: start: 20091225, end: 20091225
  22. ACTEMRA [Suspect]
     Route: 041
     Dates: end: 20100219
  23. RHEUMATREX [Suspect]
     Indication: RHEUMATOID ARTHRITIS
     Route: 048
     Dates: start: 20080101
  24. RHEUMATREX [Suspect]
     Route: 048
     Dates: start: 20081127, end: 20100114
  25. PREDNISOLONE [Concomitant]
     Route: 048
     Dates: end: 20090219
  26. PREDNISOLONE [Concomitant]
     Route: 048
     Dates: start: 20090220, end: 20090317
  27. PREDNISOLONE [Concomitant]
     Route: 048
     Dates: start: 20090318, end: 20090101
  28. PREDNISOLONE [Concomitant]
     Route: 048
     Dates: start: 20091002, end: 20100122
  29. PREDNISOLONE [Concomitant]
     Route: 048
     Dates: start: 20100123
  30. LOXONIN [Concomitant]
     Route: 048
  31. MUCOSTA [Concomitant]
     Route: 048
  32. FOSAMAX [Concomitant]
     Dosage: DRUG: FOSAMAC 35 MG
     Route: 048
  33. FOLIC ACID [Concomitant]
     Route: 048
     Dates: end: 20100101
  34. FOLIC ACID [Concomitant]
     Route: 048
     Dates: start: 20100116, end: 20100120

REACTIONS (1)
  - LYMPHOPROLIFERATIVE DISORDER [None]
